FAERS Safety Report 8976681 (Version 2)
Quarter: 2013Q1

REPORT INFORMATION
  Report Type: Spontaneous
  Country: US (occurrence: US)
  Receive Date: 20121220
  Receipt Date: 20130205
  Transmission Date: 20140127
  Serious: Yes (Death)
  Sender: FDA-Public Use
  Company Number: US-PFIZER INC-2012319724

PATIENT
  Age: 54 Year
  Sex: Female

DRUGS (1)
  1. REVATIO [Suspect]
     Indication: PULMONARY HYPERTENSION
     Dosage: ONE 20 MG TABLET, 3X/DAY
     Route: 048

REACTIONS (2)
  - Hypertension [Fatal]
  - Liver injury [Fatal]
